FAERS Safety Report 8818508 (Version 2)
Quarter: 2012Q4

REPORT INFORMATION
  Report Type: Spontaneous
  Country: US (occurrence: None)
  Receive Date: 20121003
  Receipt Date: 20121004
  Transmission Date: 20130627
  Serious: Yes (Other)
  Sender: FDA-Public Use
  Company Number: US-DEXPHARM-20121273

PATIENT
  Sex: Female
  Weight: 62.13 kg

DRUGS (4)
  1. OMEPRAZOLE [Suspect]
     Indication: STOMACH PAIN
     Route: 048
     Dates: start: 20120120, end: 20120918
  2. TYLENOL [Concomitant]
  3. ANTIHYPERTENSIVES [Concomitant]
  4. COUMADIN [Concomitant]

REACTIONS (3)
  - Chest pain [None]
  - Dizziness [None]
  - Medical device discomfort [None]
